FAERS Safety Report 19152108 (Version 1)
Quarter: 2021Q2

REPORT INFORMATION
  Report Type: Spontaneous
  Country: CA (occurrence: CA)
  Receive Date: 20210419
  Receipt Date: 20210419
  Transmission Date: 20210717
  Serious: Yes (Other)
  Sender: FDA-Public Use
  Company Number: CA-JNJFOC-20210429133

PATIENT
  Age: 55 Year
  Sex: Female
  Weight: 121 kg

DRUGS (3)
  1. REMICADE [Suspect]
     Active Substance: INFLIXIMAB
     Indication: CROHN^S DISEASE
     Route: 042
  2. SYNTHROID [Concomitant]
     Active Substance: LEVOTHYROXINE SODIUM
  3. IRON SUCROSE [Concomitant]
     Active Substance: IRON SUCROSE
     Indication: HAEMORRHAGE

REACTIONS (11)
  - Fistula [Unknown]
  - Condition aggravated [Unknown]
  - Off label use [Unknown]
  - Blood thyroid stimulating hormone decreased [Unknown]
  - Anxiety [Unknown]
  - Abdominal pain lower [Unknown]
  - Diarrhoea [Unknown]
  - Dyspnoea [Unknown]
  - Malaise [Unknown]
  - Hypertrophic cardiomyopathy [Unknown]
  - Stress [Unknown]
